FAERS Safety Report 25799279 (Version 1)
Quarter: 2025Q3

REPORT INFORMATION
  Report Type: Report from Study
  Country: US (occurrence: US)
  Receive Date: 20250913
  Receipt Date: 20250913
  Transmission Date: 20251021
  Serious: Yes (Other)
  Sender: ALEXION PHARMACEUTICALS
  Company Number: US-AstraZeneca-CH-00946351A

PATIENT
  Age: 80 Year
  Sex: Male

DRUGS (1)
  1. ACALABRUTINIB [Suspect]
     Active Substance: ACALABRUTINIB
     Indication: Chronic lymphocytic leukaemia
     Dosage: 100 MILLIGRAM, Q12H
     Dates: start: 202106

REACTIONS (11)
  - Bladder cancer [Unknown]
  - Malignant melanoma [Recovered/Resolved]
  - Skin cancer [Unknown]
  - Diarrhoea [Unknown]
  - Product dose omission issue [Unknown]
  - Drug hypersensitivity [Unknown]
  - Appendicitis perforated [Unknown]
  - Hot flush [Unknown]
  - Pain [Unknown]
  - Sciatica [Unknown]
  - Clostridium difficile infection [Unknown]
